FAERS Safety Report 19540906 (Version 1)
Quarter: 2021Q3

REPORT INFORMATION
  Report Type: Spontaneous
  Country: US (occurrence: US)
  Receive Date: 20210714
  Receipt Date: 20210714
  Transmission Date: 20211014
  Serious: Yes (Other)
  Sender: FDA-Public Use
  Company Number: None

PATIENT
  Age: 31 Year
  Sex: Female
  Weight: 79.2 kg

DRUGS (3)
  1. ZOLOFT [Suspect]
     Active Substance: SERTRALINE HYDROCHLORIDE
     Indication: BIPOLAR DISORDER
     Dosage: ?          QUANTITY:30 TABLET(S);?
     Route: 048
  2. VITAMIN D [Concomitant]
     Active Substance: VITAMIN D NOS
  3. DEXTROAMPHETAMINE. [Concomitant]
     Active Substance: DEXTROAMPHETAMINE

REACTIONS (22)
  - Hypoaesthesia [None]
  - Anxiety [None]
  - Vertigo [None]
  - Fatigue [None]
  - Facial pain [None]
  - Dissociation [None]
  - Muscular weakness [None]
  - Dizziness [None]
  - Headache [None]
  - Eye pain [None]
  - Withdrawal syndrome [None]
  - Panic attack [None]
  - Insomnia [None]
  - Drug ineffective [None]
  - Nausea [None]
  - Decreased appetite [None]
  - Psoriasis [None]
  - Tremor [None]
  - Musculoskeletal stiffness [None]
  - Asthenia [None]
  - Crying [None]
  - Paraesthesia [None]

NARRATIVE: CASE EVENT DATE: 20210703
